FAERS Safety Report 18665823 (Version 1)
Quarter: 2020Q4

REPORT INFORMATION
  Report Type: Spontaneous
  Country: GB (occurrence: GB)
  Receive Date: 20201226
  Receipt Date: 20201226
  Transmission Date: 20210114
  Serious: Yes (Disabling)
  Sender: FDA-Public Use
  Company Number: GB-ACCORD-212121

PATIENT
  Age: 76 Year
  Sex: Female

DRUGS (3)
  1. FLUCLOXACILLIN [Suspect]
     Active Substance: FLUCLOXACILLIN
     Indication: INFECTION
     Route: 048
     Dates: start: 20201020, end: 20201027
  2. DILTIAZEM. [Concomitant]
     Active Substance: DILTIAZEM
  3. APIXABAN [Suspect]
     Active Substance: APIXABAN
     Indication: ANTICOAGULATION DRUG LEVEL
     Route: 048

REACTIONS (1)
  - Drug-induced liver injury [Recovering/Resolving]
